FAERS Safety Report 10222628 (Version 1)
Quarter: 2014Q2

REPORT INFORMATION
  Report Type: Spontaneous
  Country: DE (occurrence: DE)
  Receive Date: 20140606
  Receipt Date: 20140606
  Transmission Date: 20141212
  Serious: Yes (Congenital Anomaly, Other)
  Sender: FDA-Public Use
  Company Number: DE-TEVA-486185GER

PATIENT
  Age: 1 Day
  Sex: Female

DRUGS (2)
  1. PANTOPRAZOL [Suspect]
     Route: 064
  2. FOLIO FORTE [Concomitant]
     Route: 064

REACTIONS (3)
  - Pyloric stenosis [Recovered/Resolved with Sequelae]
  - Small for dates baby [Unknown]
  - Pneumothorax [Recovered/Resolved]
